FAERS Safety Report 6310178-0 (Version None)
Quarter: 2009Q3

REPORT INFORMATION
  Report Type: 
  Country: None (occurrence: None)
  Receive Date: 20090814
  Receipt Date: 20090807
  Transmission Date: 20100115
  Serious: Yes (Disabling)
  Sender: FDA-Public Use
  Company Number: US-MERCK-0908USA01334

PATIENT
  Sex: Female

DRUGS (1)
  1. FOSAMAX [Suspect]
     Route: 048
     Dates: start: 19980101, end: 20070101

REACTIONS (3)
  - LOW TURNOVER OSTEOPATHY [None]
  - OSTEONECROSIS [None]
  - OSTEOPOROSIS [None]
